FAERS Safety Report 12490334 (Version 3)
Quarter: 2016Q3

REPORT INFORMATION
  Report Type: Spontaneous
  Country: US (occurrence: US)
  Receive Date: 20160622
  Receipt Date: 20160913
  Transmission Date: 20161109
  Serious: Yes (Other)
  Sender: FDA-Public Use
  Company Number: US-ACTELION-A-US2016-138115

PATIENT
  Age: 77 Year
  Sex: Female

DRUGS (9)
  1. UPTRAVI [Suspect]
     Active Substance: SELEXIPAG
     Indication: PULMONARY ARTERIAL HYPERTENSION
     Dosage: 600 MCG, BID
     Route: 048
  2. COUMADIN [Concomitant]
     Active Substance: WARFARIN SODIUM
  3. UPTRAVI [Suspect]
     Active Substance: SELEXIPAG
     Dosage: 200 MCG, BID
     Route: 048
     Dates: start: 20160317
  4. UPTRAVI [Suspect]
     Active Substance: SELEXIPAG
     Dosage: 400 MCG, BID
     Route: 048
  5. UPTRAVI [Suspect]
     Active Substance: SELEXIPAG
     Dosage: 1000 MCG, BID
     Route: 048
  6. TYVASO [Concomitant]
     Active Substance: TREPROSTINIL
  7. UPTRAVI [Suspect]
     Active Substance: SELEXIPAG
     Dosage: 600 MCG, BID
     Route: 048
  8. AMBRISENTAN [Suspect]
     Active Substance: AMBRISENTAN
     Indication: PRODUCT USED FOR UNKNOWN INDICATION
     Dosage: 10 MG, QD
     Route: 065
     Dates: start: 20130416
  9. ADCIRCA [Concomitant]
     Active Substance: TADALAFIL

REACTIONS (15)
  - Palpitations [Unknown]
  - Depression [Unknown]
  - Headache [Unknown]
  - Drug ineffective [Unknown]
  - Throat irritation [Unknown]
  - Fall [Unknown]
  - Fatigue [Unknown]
  - Hypotension [Unknown]
  - Eye pain [Unknown]
  - Drug intolerance [Unknown]
  - Myalgia [Unknown]
  - Pain [Recovering/Resolving]
  - Pain in extremity [Unknown]
  - Dyspnoea exertional [Unknown]
  - Oedema peripheral [Unknown]

NARRATIVE: CASE EVENT DATE: 20160317
